FAERS Safety Report 5609038-X (Version None)
Quarter: 2008Q1

REPORT INFORMATION
  Report Type: 
  Country: None (occurrence: None)
  Receive Date: 20080131
  Receipt Date: 20080123
  Transmission Date: 20080703
  Serious: Yes (Hospitalization)
  Sender: FDA-Public Use
  Company Number: FR-AVENTIS-200810340FR

PATIENT
  Age: 51 Year
  Sex: Female

DRUGS (2)
  1. TAXOTERE [Suspect]
     Route: 042
     Dates: start: 20070906, end: 20070906
  2. MEDROL [Concomitant]
     Route: 048
     Dates: start: 20070906, end: 20070908

REACTIONS (2)
  - HYPERSENSITIVITY [None]
  - SENSE OF OPPRESSION [None]
